FAERS Safety Report 5823416-5 (Version None)
Quarter: 2008Q3

REPORT INFORMATION
  Report Type: 
  Country: None (occurrence: None)
  Receive Date: 20080725
  Receipt Date: 20051001
  Transmission Date: 20090109
  Serious: No
  Sender: FDA-Public Use
  Company Number: US-ABBOTT-08P-163-0443688-00

PATIENT
  Age: 43 Year
  Sex: Female

DRUGS (10)
  1. NORVIR [Suspect]
     Indication: DRUG USE FOR UNKNOWN INDICATION
  2. KALETRA [Suspect]
     Indication: BLOOD HIV RNA INCREASED
     Dates: start: 20051205, end: 20061207
  3. KALETRA [Suspect]
     Indication: BLOOD HIV RNA INCREASED
     Dates: start: 20061207
  4. ABACAVIR SULFATE/LAMIVUDINE [Concomitant]
     Indication: DRUG USE FOR UNKNOWN INDICATION
     Dates: start: 20051205
  5. ANTIDEPRESSANTS [Concomitant]
     Indication: DRUG USE FOR UNKNOWN INDICATION
  6. MULTI-VITAMINS [Concomitant]
     Indication: DRUG USE FOR UNKNOWN INDICATION
  7. BACTRIM [Concomitant]
     Indication: DRUG USE FOR UNKNOWN INDICATION
  8. DIDANOSINE [Concomitant]
  9. TENOFOVIR DISOPROXIL FUMARATE [Concomitant]
  10. ATAZANAVIR SULFATE [Concomitant]

REACTIONS (7)
  - ABDOMINAL PAIN [None]
  - CACHEXIA [None]
  - DIZZINESS [None]
  - DRUG INTOLERANCE [None]
  - NEUTROPENIA [None]
  - RASH [None]
  - WEIGHT INCREASED [None]
